FAERS Safety Report 7828133-8 (Version None)
Quarter: 2011Q4

REPORT INFORMATION
  Report Type: 
  Country: None (occurrence: None)
  Receive Date: 20111018
  Receipt Date: 20111003
  Transmission Date: 20120403
  Serious: Yes (Hospitalization, Other)
  Sender: FDA-Public Use
  Company Number: US-2011-10748

PATIENT
  Age: 28 Year
  Sex: Female

DRUGS (3)
  1. METHOTREXATE TEVA (METHOTREXATE SODIUM) [Concomitant]
  2. CYCLOPHOSPHAMIDE [Concomitant]
  3. BUSULFEX [Suspect]
     Indication: STEM CELL TRANSPLANT
     Dosage: DAILY DOSE, INTRAVENOUS
     Route: 042
     Dates: start: 20110821, end: 20110824

REACTIONS (2)
  - PULMONARY ALVEOLAR HAEMORRHAGE [None]
  - ACUTE RESPIRATORY DISTRESS SYNDROME [None]
